FAERS Safety Report 8318876-4 (Version None)
Quarter: 2012Q2

REPORT INFORMATION
  Report Type: 
  Country: None (occurrence: None)
  Receive Date: 20120427
  Receipt Date: 20120424
  Transmission Date: 20120825
  Serious: Yes (Death, Hospitalization, Other)
  Sender: FDA-Public Use
  Company Number: JP-PFIZER INC-2012094086

PATIENT
  Age: 86 Year
  Sex: Male
  Weight: 62 kg

DRUGS (18)
  1. AMLODIPINE BESILATE [Suspect]
     Indication: HYPERTENSION
     Dosage: 5 MG, 2X/DAY
     Route: 048
     Dates: start: 20120118, end: 20120321
  2. ASPIRIN [Concomitant]
     Indication: ANGINA PECTORIS
     Dosage: 100 MG, 1X/DAY
     Route: 048
     Dates: end: 20120412
  3. PLAVIX [Concomitant]
     Indication: VERTEBRAL ARTERY STENOSIS
     Dosage: 75 MG, 1X/DAY
     Route: 048
     Dates: start: 20081022, end: 20120412
  4. PLAVIX [Concomitant]
     Indication: CEREBRAL ARTERY STENOSIS
  5. PRORNER [Concomitant]
     Indication: HYPOAESTHESIA
     Dosage: 40 UG, 3X/DAY
     Route: 048
     Dates: start: 20101110, end: 20120412
  6. ZETIA [Concomitant]
     Indication: HYPERLIPIDAEMIA
     Dosage: 10 MG, 1X/DAY
     Route: 048
     Dates: start: 20101222, end: 20120412
  7. ISOSORBIDE DINITRATE [Concomitant]
     Indication: ANGINA PECTORIS
     Dosage: 40 MG, 1X/DAY
     Route: 062
     Dates: start: 20081210, end: 20120412
  8. AMLODIPINE BESILATE [Suspect]
     Dosage: 7.5 MG, 2X/DAY
     Route: 048
     Dates: start: 20120322
  9. FUROSEMIDE [Concomitant]
     Indication: CARDIAC FAILURE
     Dosage: 40 MG, DAILY
     Route: 048
     Dates: start: 20120222, end: 20120412
  10. NIKORANMART [Concomitant]
     Indication: ANGINA PECTORIS
     Dosage: 5 MG, 3X/DAY
     Route: 048
     Dates: start: 20081119, end: 20120412
  11. LANSOPRAZOLE [Concomitant]
     Indication: PROPHYLAXIS
     Dosage: 30 MG, 1X/DAY
     Route: 048
     Dates: start: 20100217, end: 20120412
  12. CANDESARTAN CILEXETIL [Concomitant]
     Indication: HYPERTENSION
     Dosage: 12 MG, DAILY
     Route: 048
     Dates: start: 20110202
  13. LANTUS [Concomitant]
     Indication: DIABETES MELLITUS
     Dosage: 6 IU, 1X/DAY
     Route: 058
     Dates: start: 20101222, end: 20120412
  14. ALLOPURINOL [Concomitant]
     Indication: HYPERURICAEMIA
     Dosage: 50 MG, 1X/DAY
     Route: 048
     Dates: start: 20101222, end: 20120412
  15. GLUFAST [Concomitant]
     Dosage: UNK
     Route: 048
     Dates: end: 20120412
  16. CRESTOR [Concomitant]
     Indication: HYPERLIPIDAEMIA
     Dosage: 2.5 MG, 1X/DAY
     Route: 048
     Dates: start: 20100811, end: 20120412
  17. URIEF [Concomitant]
     Indication: DYSURIA
     Dosage: 4 MG, 2X/DAY
     Route: 048
     Dates: start: 20090520, end: 20120412
  18. CARVEDILOL [Concomitant]
     Indication: CARDIAC FAILURE
     Dosage: 15 MG, 1X/DAY
     Route: 048
     Dates: start: 20120321, end: 20120412

REACTIONS (1)
  - CARDIAC FAILURE ACUTE [None]
